FAERS Safety Report 8128478-0 (Version None)
Quarter: 2012Q1

REPORT INFORMATION
  Report Type: 
  Country: None (occurrence: None)
  Receive Date: 20120210
  Receipt Date: 20120127
  Transmission Date: 20120608
  Serious: Yes (Hospitalization, Other)
  Sender: FDA-Public Use
  Company Number: US-BAYER-201039298NA

PATIENT
  Age: 24 Year
  Sex: Female
  Weight: 88 kg

DRUGS (11)
  1. DARVOCET [Concomitant]
  2. ACETAMINOPHEN [Concomitant]
  3. LEXAPRO [Concomitant]
     Dosage: 20 MG, UNK
     Route: 048
     Dates: start: 20040923
  4. ARMODAFINIL [Concomitant]
  5. YASMIN [Suspect]
     Indication: ORAL CONTRACEPTION
     Dosage: UNK UNK, QD
     Route: 048
     Dates: start: 20040101, end: 20040101
  6. PREVACID [Concomitant]
  7. OXYCONTIN [Concomitant]
  8. EFFEXOR [Concomitant]
     Dosage: 75 MG, QD
  9. DRIXORAL ALLERGY SINUS [Concomitant]
     Dosage: UNK
  10. GLUCOPHAGE [Concomitant]
     Dosage: 500 MG, TID
  11. PERCOCET [Concomitant]

REACTIONS (1)
  - PULMONARY EMBOLISM [None]
